FAERS Safety Report 4333179-0 (Version None)
Quarter: 2004Q1

REPORT INFORMATION
  Report Type: 
  Country: None (occurrence: None)
  Receive Date: 20040330
  Receipt Date: 20021210
  Transmission Date: 20041129
  Serious: Yes (Life-Threatening, Hospitalization, Other)
  Sender: FDA-Public Use
  Company Number: 2002IC000234

PATIENT
  Age: 65 Year
  Sex: Female
  Weight: 38 kg

DRUGS (2)
  1. FLUOROURACIL [Suspect]
     Indication: COLON CANCER
     Dosage: 540 MG; 5DX1; INTRAVENOUIS
     Route: 042
     Dates: start: 20000705, end: 20000709
  2. CALCIUM FOLINATE (CALCIUM FOLINATE) [Suspect]
     Indication: COLON CANCER
     Dosage: 25 MG; 5DX1; INTRAVENOUS
     Route: 042
     Dates: start: 20000705, end: 20000709

REACTIONS (8)
  - DEHYDRATION [None]
  - DIARRHOEA [None]
  - DRUG HYPERSENSITIVITY [None]
  - HYPERKALAEMIA [None]
  - HYPOKALAEMIA [None]
  - LEUKOPENIA [None]
  - PRURITUS [None]
  - RASH [None]
